FAERS Safety Report 6136093-3 (Version None)
Quarter: 2009Q1

REPORT INFORMATION
  Report Type: 
  Country: None (occurrence: None)
  Receive Date: 20090325
  Receipt Date: 20090308
  Transmission Date: 20090719
  Serious: Yes (Other)
  Sender: FDA-Public Use
  Company Number: 2007S1006885

PATIENT
  Age: 61 Year
  Sex: Male
  Weight: 113.3993 kg

DRUGS (11)
  1. PHOSPHOSODA FLAVOR NOT SPECIFIED [Suspect]
     Indication: COLONOSCOPY
     Dosage: 90 ML; TOTAL; PO
     Route: 048
     Dates: start: 20010531, end: 20010531
  2. GLUCOPHAGE [Concomitant]
  3. GLUCOTROL [Concomitant]
  4. ADALAT [Concomitant]
  5. ALTACE [Concomitant]
  6. ZOCOR [Concomitant]
  7. ATIVAN [Concomitant]
  8. DARVOCET [Concomitant]
  9. ATENOLOL [Concomitant]
  10. HYDROCHLOROTHIAZIDE [Concomitant]
  11. TERAZOSIN HCL [Concomitant]

REACTIONS (4)
  - DIABETIC NEPHROPATHY [None]
  - RENAL FAILURE [None]
  - RENAL INJURY [None]
  - THERAPEUTIC AGENT TOXICITY [None]
